FAERS Safety Report 4860658-X (Version None)
Quarter: 2005Q4

REPORT INFORMATION
  Report Type: 
  Country: None (occurrence: None)
  Receive Date: 20051216
  Receipt Date: 20051130
  Transmission Date: 20060501
  Serious: Yes (Other)
  Sender: FDA-Public Use
  Company Number: 218742

PATIENT
  Age: 86 Year
  Sex: Male
  Weight: 83 kg

DRUGS (1)
  1. AVASTIN [Suspect]
     Indication: COLORECTAL CANCER METASTATIC
     Dosage: 5 MG/KG, Q2W, INTRAVENOUS
     Route: 042
     Dates: start: 20050711, end: 20050816

REACTIONS (4)
  - DISEASE PROGRESSION [None]
  - POSTOPERATIVE WOUND COMPLICATION [None]
  - WOUND HAEMORRHAGE [None]
  - WOUND INFECTION [None]
